FAERS Safety Report 5764614-9 (Version None)
Quarter: 2008Q2

REPORT INFORMATION
  Report Type: 
  Country: None (occurrence: None)
  Receive Date: 20080611
  Receipt Date: 20080409
  Transmission Date: 20081010
  Serious: No
  Sender: FDA-Public Use
  Company Number: US-BAYER-200819265NA

PATIENT
  Age: 42 Year
  Sex: Female
  Weight: 68 kg

DRUGS (1)
  1. CIPROFLOXACIN HCL [Suspect]
     Indication: INFECTION PROPHYLAXIS
     Dosage: UNIT DOSE: 500 MG
     Route: 048
     Dates: start: 20060101, end: 20071201

REACTIONS (10)
  - ARTHRALGIA [None]
  - CHEST PAIN [None]
  - HEART RATE IRREGULAR [None]
  - MUSCULOSKELETAL PAIN [None]
  - MUSCULOSKELETAL STIFFNESS [None]
  - NEUROPATHY PERIPHERAL [None]
  - PAIN IN EXTREMITY [None]
  - PALPITATIONS [None]
  - PARAESTHESIA [None]
  - TENDON PAIN [None]
